FAERS Safety Report 7806338-X (Version None)
Quarter: 2011Q4

REPORT INFORMATION
  Report Type: 
  Country: None (occurrence: None)
  Receive Date: 20111011
  Receipt Date: 20111007
  Transmission Date: 20120403
  Serious: Yes (Hospitalization, Other)
  Sender: FDA-Public Use
  Company Number: PH-PFIZER INC-2011202686

PATIENT
  Age: 40 Year

DRUGS (6)
  1. PREDNISONE [Concomitant]
     Dosage: 5 MG, 1X/DAY
  2. MYONAL [Concomitant]
     Dosage: 50 MG, 3X/DAY
  3. LYRICA [Suspect]
     Indication: NEURALGIA
     Dosage: 50 MG, 2X/DAY
     Dates: start: 20110826, end: 20110828
  4. FENTANYL [Concomitant]
     Dosage: BASAL RATE OF 37 MICROGRAMS PER HOUR, DEMAND OF 10 MICROGRAMS PER DEMAND WITH LOCKOUT TIME OF 15 MIN
  5. LYRICA [Suspect]
     Dosage: 150 MG, 2X/DAY
     Dates: start: 20110830, end: 20110830
  6. LYRICA [Suspect]
     Dosage: 75 MG, 2X/DAY
     Dates: start: 20110829, end: 20110830

REACTIONS (6)
  - ANAPHYLACTIC SHOCK [None]
  - DYSPNOEA [None]
  - THROAT TIGHTNESS [None]
  - HYPERAEMIA [None]
  - PRURITUS [None]
  - ERYTHEMA [None]
